FAERS Safety Report 5966245-4 (Version None)
Quarter: 2008Q4

REPORT INFORMATION
  Report Type: 
  Country: None (occurrence: None)
  Receive Date: 20081119
  Receipt Date: 20080902
  Transmission Date: 20090506
  Serious: No
  Sender: FDA-Public Use
  Company Number: WAES 0809USA00364

PATIENT
  Age: 31 Year
  Sex: Female

DRUGS (3)
  1. JANUVIA [Suspect]
     Indication: TYPE 2 DIABETES MELLITUS
     Dosage: PO : PO
     Route: 048
     Dates: start: 20080501, end: 20080501
  2. JANUVIA [Suspect]
     Indication: TYPE 2 DIABETES MELLITUS
     Dosage: PO : PO
     Route: 048
     Dates: start: 20080601, end: 20080601
  3. METFORMIN HCL [Concomitant]

REACTIONS (3)
  - BRONCHITIS [None]
  - HAEMOPTYSIS [None]
  - OROPHARYNGEAL PAIN [None]
